FAERS Safety Report 19550375 (Version 1)
Quarter: 2021Q3

REPORT INFORMATION
  Report Type: Spontaneous
  Country: NL (occurrence: NL)
  Receive Date: 20210715
  Receipt Date: 20210715
  Transmission Date: 20211014
  Serious: Yes (Hospitalization)
  Sender: FDA-Public Use
  Company Number: NL-TEVA-2021-NL-1931829

PATIENT
  Age: 67 Year
  Sex: Male
  Weight: 84 kg

DRUGS (11)
  1. DESOXIMETASON EMULSIE CUTAAN 2,5MG/G / TOPICORTE O/W EMULSIE 2,5MG/G [Concomitant]
     Dosage: SPREAD (EMULSION), 2.5 MG/G (MILLIGRAMS PER GRAM), THERAPY START DATE AND END DATE : ASKU
  2. SIMVASTATINE TABLET FO 40MG / BRAND NAME NOT SPECIFIED [Concomitant]
     Active Substance: SIMVASTATIN
     Dosage: 40 MG (MILLIGRAM) , THERAPY START DATE AND END DATE : ASKU
  3. ZINKOXIDE PASTA 600MG/G (SMEERSEL) / BRAND NAME NOT SPECIFIED [Concomitant]
     Dosage: PASTA, 600 MG/G (MILLIGRAM PER GRAM) , THERAPY START DATE AND END DATE : ASKU
  4. OMEPRAZOL CAPSULE MSR 20MG / BRAND NAME NOT SPECIFIED [Concomitant]
     Active Substance: OMEPRAZOLE
     Dosage: 20 MG (MILLIGRAM) ,THERAPY START DATE AND END DATE : ASKU
  5. CETIRIZINE [Concomitant]
     Active Substance: CETIRIZINE HYDROCHLORIDE
     Dosage: 10 MG (MILLIGRAM) , THERAPY START DATE AND END DATE : ASKU
  6. CLINDAMYCINE CAPSULE 300MG / BRAND NAME NOT SPECIFIED [Suspect]
     Active Substance: CLINDAMYCIN HYDROCHLORIDE
     Indication: ERYSIPELAS
     Dosage: 1800 MILLIGRAM DAILY;
     Dates: start: 20210614, end: 20210624
  7. ESOMEPRAZOL CAPSULE MSR 40MG / BRAND NAME NOT SPECIFIED [Concomitant]
     Active Substance: ESOMEPRAZOLE
     Dosage: 40 MG (MILLIGRAM) , THERAPY START DATE AND END DATE : ASKU
  8. CICLOPIROX CREME 10MG/G / BRAND NAME NOT SPECIFIED [Concomitant]
     Dosage: 10 MG/G (MILLIGRAM PER GRAM) ,THERAPY START DATE AND END DATE : ASKU
  9. ACETYLSALICYLZUUR TABLET  80MG / BRAND NAME NOT SPECIFIED [Concomitant]
     Active Substance: ASPIRIN
     Dosage: 80 MG (MILLIGRAM) , THERAPY START DATE AND END DATE : ASKU
  10. VASELINE/PARAFFINE ZALF 500/500MG/G / BRAND NAME NOT SPECIFIED [Concomitant]
     Dosage: 500/500 MG/G (MILLIGRAM PER GRAM) ,THERAPY START DATE AND END DATE : ASKU
  11. CLOBETASOL CREME  0,5MG/G / BRAND NAME NOT SPECIFIED [Concomitant]
     Dosage: 0.5 MG/G (MILLIGRAM PER GRAM) , THERAPY START DATE AND END DATE : ASKU

REACTIONS (6)
  - Oesophagitis [Recovering/Resolving]
  - Dysphagia [Recovering/Resolving]
  - Chest discomfort [Recovering/Resolving]
  - Dyspnoea [Recovering/Resolving]
  - Pruritus [Recovering/Resolving]
  - Vomiting [Recovering/Resolving]

NARRATIVE: CASE EVENT DATE: 20210621
